FAERS Safety Report 15108988 (Version 1)
Quarter: 2018Q3

REPORT INFORMATION
  Report Type: Spontaneous
  Country: US (occurrence: US)
  Receive Date: 20180705
  Receipt Date: 20180705
  Transmission Date: 20181010
  Serious: No
  Sender: FDA-Public Use
  Company Number: US-GLENMARK PHARMACEUTICALS-2018GMK034921

PATIENT

DRUGS (2)
  1. LITHIUM. [Suspect]
     Active Substance: LITHIUM
     Indication: PRODUCT USED FOR UNKNOWN INDICATION
     Dosage: UNK
     Route: 065
  2. LAMOTRIGINE. [Suspect]
     Active Substance: LAMOTRIGINE
     Indication: PRODUCT USED FOR UNKNOWN INDICATION
     Dosage: UNK
     Route: 065

REACTIONS (10)
  - Weight increased [Unknown]
  - Anxiety [Unknown]
  - Anger [Unknown]
  - Thinking abnormal [Unknown]
  - Irritability [Unknown]
  - Abnormal dreams [Unknown]
  - Paranoia [Unknown]
  - Obsessive thoughts [Unknown]
  - Nightmare [Unknown]
  - Insomnia [Unknown]
